FAERS Safety Report 8138310 (Version 10)
Quarter: 2012Q4

REPORT INFORMATION
  Report Type: 
  Country: US (occurrence: US)
  Receive Date: 20110915
  Receipt Date: 20121022
  Transmission Date: 20130627
  Serious: Yes (Hospitalization, Disabling, Other)
  Sender: FDA-Public Use
  Company Number: US-MERCK-1109USA01359

PATIENT

DRUGS (6)
  1. FOSAMAX [Suspect]
     Indication: OSTEOPOROSIS
     Dosage: 70 mg, QW
     Route: 048
     Dates: start: 200202, end: 20050629
  2. FOSAMAX [Suspect]
     Indication: OSTEOPENIA
     Dosage: 70 mg, QW
     Route: 048
     Dates: start: 20051101, end: 200604
  3. FOSAMAX [Suspect]
     Dosage: 70 mg, QW
     Route: 048
     Dates: start: 200704, end: 20080129
  4. FOSAMAX [Suspect]
     Dosage: UNK
  5. BONIVA [Suspect]
     Route: 042
     Dates: start: 20080129, end: 200902
  6. FORTEO [Suspect]
     Dates: start: 20050629, end: 200511

REACTIONS (65)
  - Fracture delayed union [Recovered/Resolved]
  - Device failure [Unknown]
  - Hyperparathyroidism [Unknown]
  - Fall [Unknown]
  - Pneumonitis [Unknown]
  - Chronic obstructive pulmonary disease [Unknown]
  - Bronchitis [Unknown]
  - Cardiac failure congestive [Unknown]
  - Device failure [Unknown]
  - Fall [Unknown]
  - Femur fracture [Recovered/Resolved]
  - Femur fracture [Recovered/Resolved]
  - Pain in extremity [Unknown]
  - Low turnover osteopathy [Unknown]
  - Anxiety [Not Recovered/Not Resolved]
  - Device failure [Unknown]
  - Chronic obstructive pulmonary disease [Unknown]
  - Fear [Unknown]
  - Diabetes mellitus [Not Recovered/Not Resolved]
  - Hypercalcaemia [Unknown]
  - Skin papilloma [Unknown]
  - Anaemia postoperative [Unknown]
  - Cough [Unknown]
  - Lung disorder [Unknown]
  - Sinusitis [Unknown]
  - Mastoiditis [Unknown]
  - Arachnoid cyst [Unknown]
  - Cerebral ischaemia [Not Recovered/Not Resolved]
  - Balance disorder [Unknown]
  - Gait disturbance [Not Recovered/Not Resolved]
  - Osteoarthritis [Unknown]
  - Joint effusion [Unknown]
  - Liver function test abnormal [Recovering/Resolving]
  - Adverse drug reaction [Unknown]
  - Muscular weakness [Unknown]
  - Impaired healing [Not Recovered/Not Resolved]
  - Adverse drug reaction [Unknown]
  - Granuloma [Unknown]
  - Hepatomegaly [Unknown]
  - Weight increased [Unknown]
  - Aortic calcification [Unknown]
  - Hepatic steatosis [Unknown]
  - Waist circumference increased [Unknown]
  - Liver function test abnormal [Unknown]
  - Adverse drug reaction [Unknown]
  - Myopathy [Unknown]
  - Nasal congestion [Unknown]
  - Throat irritation [Unknown]
  - Rotator cuff syndrome [Unknown]
  - Respiratory tract infection [Unknown]
  - Joint effusion [Unknown]
  - Sinus polyp [Unknown]
  - Impaired healing [Unknown]
  - Vertebral foraminal stenosis [Unknown]
  - Fracture delayed union [Unknown]
  - Infection [Unknown]
  - Muscular weakness [Unknown]
  - Muscle atrophy [Unknown]
  - Hypercalcaemia [Unknown]
  - Foot fracture [Unknown]
  - Foot fracture [Recovered/Resolved]
  - Osteoarthritis [Unknown]
  - Skin ulcer [Unknown]
  - Skin papilloma [Unknown]
  - Pain in extremity [Unknown]
